FAERS Safety Report 18504514 (Version 1)
Quarter: 2020Q4

REPORT INFORMATION
  Report Type: Spontaneous
  Country: FR (occurrence: FR)
  Receive Date: 20201114
  Receipt Date: 20201114
  Transmission Date: 20210114
  Serious: Yes (Other)
  Sender: FDA-Public Use
  Company Number: NVSC2020FR299281

PATIENT
  Age: 51 Year
  Sex: Female
  Weight: 54 kg

DRUGS (7)
  1. XGEVA [Concomitant]
     Active Substance: DENOSUMAB
     Indication: BREAST CANCER
     Dosage: UNK
     Route: 058
     Dates: start: 202002
  2. PARACETAMOL [Concomitant]
     Active Substance: ACETAMINOPHEN
     Indication: PAIN
     Dosage: UNK
     Route: 048
  3. ZOLADEX [Concomitant]
     Active Substance: GOSERELIN ACETATE
     Indication: BREAST CANCER
     Dosage: UNK
     Route: 058
     Dates: start: 202002
  4. OXYCONTIN [Concomitant]
     Active Substance: OXYCODONE HYDROCHLORIDE
     Indication: PAIN
     Dosage: UNK
     Route: 048
  5. LACTULOSE. [Concomitant]
     Active Substance: LACTULOSE
     Indication: CONSTIPATION
     Dosage: UNK
     Route: 048
  6. FEMARA [Suspect]
     Active Substance: LETROZOLE
     Indication: BREAST CANCER
     Dosage: UNK
     Route: 048
     Dates: start: 202002, end: 20200918
  7. KISQALI [Suspect]
     Active Substance: RIBOCICLIB
     Indication: BREAST CANCER
     Dosage: 600 MG,QD
     Route: 048
     Dates: start: 202002, end: 20200918

REACTIONS (1)
  - Hepatocellular injury [Not Recovered/Not Resolved]

NARRATIVE: CASE EVENT DATE: 20200727
